FAERS Safety Report 6894487-2 (Version None)
Quarter: 2010Q3

REPORT INFORMATION
  Report Type: 
  Country: None (occurrence: None)
  Receive Date: 20100802
  Receipt Date: 20100727
  Transmission Date: 20110219
  Serious: Yes (Death, Hospitalization)
  Sender: FDA-Public Use
  Company Number: AT-CELGENEUS-009-21880-10041281

PATIENT
  Age: 75 Year
  Sex: Male

DRUGS (8)
  1. REVLIMID [Suspect]
     Route: 048
     Dates: start: 20100302, end: 20100401
  2. ALLOPURINOL [Concomitant]
     Route: 048
     Dates: start: 20100310, end: 20100401
  3. NSAID [Concomitant]
     Indication: PRODUCT USED FOR UNKNOWN INDICATION
     Route: 065
  4. LOVENOX [Concomitant]
     Route: 058
     Dates: start: 20100218, end: 20100401
  5. SINTROM [Concomitant]
     Route: 048
     Dates: start: 20091009, end: 20091014
  6. VOLTAREN [Concomitant]
     Indication: PRODUCT USED FOR UNKNOWN INDICATION
     Route: 048
     Dates: start: 20100310, end: 20100313
  7. PANTOPRAZOLE [Concomitant]
     Indication: REFLUX OESOPHAGITIS
     Route: 048
     Dates: start: 20100319, end: 20100401
  8. FORTECORTIN [Concomitant]
     Indication: PROPHYLAXIS
     Route: 048
     Dates: start: 20100316, end: 20100401

REACTIONS (3)
  - FACE OEDEMA [None]
  - LACTIC ACIDOSIS [None]
  - SEPSIS [None]
